FAERS Safety Report 7500350-6 (Version None)
Quarter: 2011Q2

REPORT INFORMATION
  Report Type: 
  Country: None (occurrence: None)
  Receive Date: 20110524
  Receipt Date: 20110518
  Transmission Date: 20111010
  Serious: Yes (Hospitalization)
  Sender: FDA-Public Use
  Company Number: US-ABBOTT-11P-163-0727011-00

PATIENT
  Sex: Female
  Weight: 63.56 kg

DRUGS (3)
  1. HUMIRA [Suspect]
     Indication: CROHN'S DISEASE
     Route: 058
     Dates: start: 20080601, end: 20110301
  2. PROZAC [Concomitant]
     Indication: DEPRESSION
  3. KLONOPIN [Concomitant]
     Indication: DEPRESSION

REACTIONS (5)
  - ABDOMINAL PAIN [None]
  - CROHN'S DISEASE [None]
  - COLITIS [None]
  - DIARRHOEA [None]
  - PEPTIC ULCER [None]
